FAERS Safety Report 25896770 (Version 1)
Quarter: 2025Q4

REPORT INFORMATION
  Report Type: Spontaneous
  Country: US (occurrence: US)
  Receive Date: 20251008
  Receipt Date: 20251008
  Transmission Date: 20260117
  Serious: No
  Sender: COSETTE PHARMACEUTICALS INC
  Company Number: US-COSETTE-CP2025US000968

PATIENT

DRUGS (7)
  1. KETOCONAZOLE [Suspect]
     Active Substance: KETOCONAZOLE
     Indication: Seborrhoeic dermatitis
     Route: 065
  2. HYDROCORTISONE ACETATE [Concomitant]
     Active Substance: HYDROCORTISONE ACETATE
     Indication: Seborrhoeic dermatitis
     Route: 065
  3. COCONUT OIL [Concomitant]
     Active Substance: COCONUT OIL
     Indication: Seborrhoeic dermatitis
     Route: 065
  4. JOJOBA OIL [Concomitant]
     Active Substance: JOJOBA OIL
     Indication: Seborrhoeic dermatitis
     Route: 065
  5. TEA TREE OIL [Concomitant]
     Active Substance: TEA TREE OIL
     Indication: Seborrhoeic dermatitis
     Route: 065
  6. VITAMIN E [Concomitant]
     Active Substance: .ALPHA.-TOCOPHEROL
     Indication: Seborrhoeic dermatitis
     Route: 065
  7. KETOCONAZOLE [Concomitant]
     Active Substance: KETOCONAZOLE
     Indication: Seborrhoeic dermatitis
     Route: 065

REACTIONS (1)
  - Drug ineffective [Unknown]
